FAERS Safety Report 21239064 (Version 1)
Quarter: 2022Q3

REPORT INFORMATION
  Report Type: Spontaneous
  Country: US (occurrence: None)
  Receive Date: 20220822
  Receipt Date: 20220822
  Transmission Date: 20221027
  Serious: No
  Sender: FDA-Public Use
  Company Number: 2022A287061

PATIENT
  Sex: Female

DRUGS (1)
  1. LYNPARZA [Suspect]
     Active Substance: OLAPARIB
     Indication: Ovarian cancer
     Dosage: 2 150 MG IN THE MORNING AND 2 150 MG TABLET IN THE EVENING
     Route: 048
     Dates: start: 202107

REACTIONS (2)
  - Parkinson^s disease [Not Recovered/Not Resolved]
  - Fatigue [Recovering/Resolving]
